FAERS Safety Report 4956406-5 (Version None)
Quarter: 2006Q1

REPORT INFORMATION
  Report Type: 
  Country: None (occurrence: None)
  Receive Date: 20060328
  Receipt Date: 20060328
  Transmission Date: 20060701
  Serious: Yes (Other)
  Sender: FDA-Public Use
  Company Number: None

PATIENT
  Age: 42 Year
  Sex: Male
  Weight: 92.9874 kg

DRUGS (1)
  1. ZYVOX [Suspect]
     Indication: SKIN INFECTION
     Dosage: 1 TABLET BID PO
     Route: 048

REACTIONS (1)
  - BONE MARROW DISORDER [None]
